FAERS Safety Report 5690622-2 (Version None)
Quarter: 2008Q1

REPORT INFORMATION
  Report Type: 
  Country: None (occurrence: None)
  Receive Date: 20080331
  Receipt Date: 20080331
  Transmission Date: 20080703
  Serious: Yes (Other)
  Sender: FDA-Public Use
  Company Number: None

PATIENT
  Sex: Male
  Weight: 111.1313 kg

DRUGS (1)
  1. AZITHROMYCIN [Suspect]
     Indication: LYME DISEASE
     Dosage: ONE TABLET DAILY PO
     Route: 048
     Dates: start: 20080319, end: 20080330

REACTIONS (7)
  - CHILLS [None]
  - PRODUCTIVE COUGH [None]
  - PYREXIA [None]
  - RHONCHI [None]
  - SINUS CONGESTION [None]
  - UPPER RESPIRATORY TRACT INFECTION [None]
  - WHEEZING [None]
